FAERS Safety Report 20193084 (Version 2)
Quarter: 2022Q1

REPORT INFORMATION
  Report Type: Spontaneous
  Country: US (occurrence: US)
  Receive Date: 20211216
  Receipt Date: 20220104
  Transmission Date: 20220424
  Serious: No
  Sender: FDA-Public Use
  Company Number: US-JNJFOC-20211212715

PATIENT
  Sex: Male

DRUGS (1)
  1. REMICADE [Suspect]
     Active Substance: INFLIXIMAB
     Indication: Product used for unknown indication
     Route: 042

REACTIONS (2)
  - Drug level below therapeutic [Unknown]
  - Therapeutic product effect decreased [Unknown]
